FAERS Safety Report 16934061 (Version 1)
Quarter: 2019Q4

REPORT INFORMATION
  Report Type: Spontaneous
  Country: NL (occurrence: NL)
  Receive Date: 20191018
  Receipt Date: 20191018
  Transmission Date: 20200122
  Serious: Yes (Other)
  Sender: FDA-Public Use
  Company Number: NL-TEVA-2019-NL-1122383

PATIENT
  Sex: Female
  Weight: 90 kg

DRUGS (2)
  1. PARACETAMOL [Concomitant]
     Active Substance: ACETAMINOPHEN
     Dosage: 1000MG
     Dates: start: 20190913
  2. DICLOFENAC MAAGSAPRESISTENTE TABLET, 50 MG (MILLIGRAM) [Suspect]
     Active Substance: DICLOFENAC SODIUM
     Indication: PROCEDURAL PAIN
     Dosage: 50 MG
     Route: 065
     Dates: start: 20190915, end: 20190915

REACTIONS (2)
  - Confusional state [Recovering/Resolving]
  - Psychotic symptom [Recovering/Resolving]
